FAERS Safety Report 16994407 (Version 2)
Quarter: 2020Q1

REPORT INFORMATION
  Report Type: Spontaneous
  Country: JP (occurrence: JP)
  Receive Date: 20191105
  Receipt Date: 20200227
  Transmission Date: 20200409
  Serious: Yes (Other)
  Sender: FDA-Public Use
  Company Number: JP-ASTRAZENECA-2019SE84439

PATIENT
  Age: 66 Year
  Sex: Female

DRUGS (3)
  1. EMEND [Concomitant]
     Active Substance: APREPITANT
     Route: 065
     Dates: start: 20180525
  2. LYNPARZA [Suspect]
     Active Substance: OLAPARIB
     Indication: OVARIAN CANCER
     Route: 048
     Dates: start: 20180828, end: 20181101
  3. NASEA [Concomitant]
     Active Substance: RAMOSETRON HYDROCHLORIDE
     Route: 065
     Dates: start: 20180525

REACTIONS (1)
  - Malignant neoplasm progression [Unknown]
